FAERS Safety Report 24731404 (Version 1)
Quarter: 2024Q4

REPORT INFORMATION
  Report Type: Spontaneous
  Country: US (occurrence: None)
  Receive Date: 20241212
  Receipt Date: 20241212
  Transmission Date: 20250115
  Serious: Yes (Hospitalization)
  Sender: Public
  Company Number: None

PATIENT
  Age: 12 Year
  Sex: Male
  Weight: 70 kg

DRUGS (2)
  1. LUPRON DEPOT-PED [Suspect]
     Active Substance: LEUPROLIDE ACETATE
     Dosage: 30 MG EVERY 3 MONTHS INTRMUSCULAR
     Route: 030
  2. Lupron Peds [Concomitant]
     Dates: start: 20220304, end: 20231130

REACTIONS (1)
  - Juvenile idiopathic arthritis [None]

NARRATIVE: CASE EVENT DATE: 20240519
